FAERS Safety Report 20430369 (Version 1)
Quarter: 2022Q1

REPORT INFORMATION
  Report Type: Report from Study
  Country: FR (occurrence: FR)
  Receive Date: 20220204
  Receipt Date: 20220204
  Transmission Date: 20220424
  Serious: Yes (Hospitalization)
  Sender: FDA-Public Use
  Company Number: FR-SERVIER-S20007036

PATIENT

DRUGS (22)
  1. PEGASPARGASE [Suspect]
     Active Substance: PEGASPARGASE
     Indication: Acute lymphocytic leukaemia
     Dosage: 2475 IU
     Route: 042
     Dates: start: 20191207
  2. PEGASPARGASE [Suspect]
     Active Substance: PEGASPARGASE
     Dosage: 2475 IU  D4
     Dates: start: 20200525
  3. VINCRISTINE [Concomitant]
     Active Substance: VINCRISTINE
     Indication: Acute lymphocytic leukaemia
     Dosage: 1.5 MG, ON D1, D8
     Route: 042
     Dates: start: 20200522, end: 20200529
  4. DOXORUBICIN [Concomitant]
     Active Substance: DOXORUBICIN
     Indication: Acute lymphocytic leukaemia
     Dosage: 25 MG, ON D1, D8
     Route: 042
     Dates: start: 20200522, end: 20200529
  5. DEXAMETHASONE [Suspect]
     Active Substance: DEXAMETHASONE
     Indication: Acute lymphocytic leukaemia
     Dosage: 70 MG, FROM D1 TO D7
     Route: 048
     Dates: start: 2020, end: 2020
  6. METHOTREXATE [Suspect]
     Active Substance: METHOTREXATE
     Indication: Acute lymphocytic leukaemia
     Dosage: 15 MG, ON D4
     Route: 037
     Dates: start: 2020
  7. CYTARABINE DCI [Concomitant]
     Indication: Acute lymphocytic leukaemia
     Dosage: 30 MG, ON D4
     Route: 037
     Dates: start: 2020
  8. HYDROCORTISONE [Suspect]
     Active Substance: HYDROCORTISONE
     Indication: Acute lymphocytic leukaemia
     Dosage: 15 MG, ON D4
     Route: 037
     Dates: start: 2020
  9. ESOMEPRAZOLE [Concomitant]
     Active Substance: ESOMEPRAZOLE
     Indication: Prophylaxis
     Dosage: 20 MG
     Route: 048
     Dates: start: 20191205
  10. STEROGYL [Concomitant]
     Active Substance: ERGOCALCIFEROL
     Indication: Vitamin supplementation
     Dosage: 5 GTT
     Route: 048
     Dates: start: 20191126
  11. Calcidose [Concomitant]
     Indication: Mineral supplementation
     Dosage: 1000 MG
     Dates: start: 20191127
  12. SULFAMETHOXAZOLE\TRIMETHOPRIM [Concomitant]
     Active Substance: SULFAMETHOXAZOLE\TRIMETHOPRIM
     Indication: Antibiotic prophylaxis
     Dosage: 85 MG
     Route: 048
     Dates: start: 20191127
  13. RASBURICASE [Concomitant]
     Active Substance: RASBURICASE
     Indication: Prophylaxis
     Dosage: 6 MG
     Route: 042
     Dates: start: 20191121
  14. PIPERACILLIN SODIUM\TAZOBACTAM SODIUM [Concomitant]
     Active Substance: PIPERACILLIN SODIUM\TAZOBACTAM SODIUM
     Indication: Antibiotic prophylaxis
     Dosage: 8400 MG
     Route: 042
     Dates: start: 20191121
  15. DAFALGAN [Concomitant]
     Active Substance: ACETAMINOPHEN
     Indication: Pyrexia
     Dosage: 1680 MG
     Route: 042
     Dates: start: 20191120
  16. DAFALGAN [Concomitant]
     Active Substance: ACETAMINOPHEN
     Indication: Pain
  17. NUBAIN [Concomitant]
     Active Substance: NALBUPHINE HYDROCHLORIDE
     Indication: Pain
     Dosage: 30 MG
     Route: 042
     Dates: start: 20191204
  18. ONDANSETRON [Concomitant]
     Active Substance: ONDANSETRON
     Indication: Prophylaxis
     Dosage: 16 MG
     Route: 042
     Dates: start: 20191202
  19. MIDAZOLAM [Concomitant]
     Active Substance: MIDAZOLAM
     Indication: Product used for unknown indication
     Dosage: 8 MG
     Route: 042
     Dates: start: 20191121
  20. KETAMIN [Concomitant]
     Active Substance: KETAMINE
     Indication: Product used for unknown indication
     Dosage: 40 MG
     Route: 042
     Dates: start: 20191121
  21. ALIZAPRIDE DCI [Concomitant]
     Indication: Antiemetic supportive care
     Dosage: 80 MG
     Route: 042
     Dates: start: 20191203
  22. FUROSEMIDE [Concomitant]
     Active Substance: FUROSEMIDE
     Indication: Diuretic therapy
     Dosage: 42 MG
     Route: 042
     Dates: start: 20191120

REACTIONS (1)
  - Steroid diabetes [Not Recovered/Not Resolved]

NARRATIVE: CASE EVENT DATE: 20200529
